FAERS Safety Report 13365763 (Version 1)
Quarter: 2017Q1

REPORT INFORMATION
  Report Type: Spontaneous
  Country: US (occurrence: US)
  Receive Date: 20170323
  Receipt Date: 20170323
  Transmission Date: 20170429
  Serious: No
  Sender: FDA-Public Use
  Company Number: US-ALLERGAN-2016-002201

PATIENT
  Age: 62 Year
  Sex: Female

DRUGS (2)
  1. ESTRACE [Suspect]
     Active Substance: ESTRADIOL
     Indication: HORMONE REPLACEMENT THERAPY
     Dosage: 1 G, ONCE ONLY
     Route: 067
     Dates: start: 20160925, end: 20160925
  2. ESTRADIOL. [Concomitant]
     Active Substance: ESTRADIOL
     Indication: DYSURIA
     Dosage: 0.375 MG, 2X/WK
     Route: 062

REACTIONS (1)
  - Vulvovaginal burning sensation [Not Recovered/Not Resolved]

NARRATIVE: CASE EVENT DATE: 20160925
